FAERS Safety Report 9649123 (Version 2)
Quarter: 2013Q4

REPORT INFORMATION
  Report Type: Spontaneous
  Country: US (occurrence: US)
  Receive Date: 20131028
  Receipt Date: 20131028
  Transmission Date: 20140711
  Serious: No
  Sender: FDA-Public Use
  Company Number: -SAAVPROD-POMP-1003011

PATIENT
  Age: 15 Year
  Sex: Male

DRUGS (3)
  1. ALGLUCOSIDASE ALFA [Suspect]
     Indication: ACCIDENTAL EXPOSURE TO PRODUCT
     Dosage: 10 ML, ONCE
     Route: 042
     Dates: start: 20130509
  2. ELOSULFASE ALPHA, RHGALNS [Concomitant]
     Indication: MUCOPOLYSACCHARIDOSIS
     Dosage: UNK
     Route: 065
  3. CETIRIZINE [Concomitant]
     Indication: PREMEDICATION

REACTIONS (2)
  - Accidental exposure to product [Unknown]
  - Fatigue [Recovered/Resolved]
